FAERS Safety Report 9264134 (Version 2)
Quarter: 2013Q2

REPORT INFORMATION
  Report Type: Spontaneous
  Country: US (occurrence: US)
  Receive Date: 20130430
  Receipt Date: 20130508
  Transmission Date: 20140414
  Serious: No
  Sender: FDA-Public Use
  Company Number: US-PFIZER INC-2013131350

PATIENT
  Age: 52 Year
  Sex: Female
  Weight: 67.59 kg

DRUGS (1)
  1. MOTRIN IB [Suspect]
     Indication: MYALGIA
     Dosage: 200 MG ONCE A DAY
     Route: 048
     Dates: start: 20130221

REACTIONS (2)
  - Somnolence [Unknown]
  - Product closure removal difficult [Unknown]
